FAERS Safety Report 9580287 (Version 1)
Quarter: 2013Q3

REPORT INFORMATION
  Report Type: Spontaneous
  Country: US (occurrence: None)
  Receive Date: 20130916
  Receipt Date: 20130916
  Transmission Date: 20140515
  Serious: Yes (Other)
  Sender: FDA-Public Use
  Company Number: JPI-P-024546

PATIENT
  Age: 55 Year
  Sex: Female
  Weight: 76.2 kg

DRUGS (7)
  1. XYREM (500 MILLIGRAM/MILLILITERS, SOLUTION) (SODIUM OXYBATE) [Suspect]
     Indication: CATAPLEXY
     Route: 048
     Dates: start: 20120804, end: 20120815
  2. AMPHETAMINE DEXTROAMPHETAMINE, 20 MG EXTENDED RELEASE [Suspect]
     Indication: PRODUCT USED FOR UNKNOWN INDICATION
     Dates: start: 2008
  3. TIZANIDINE [Suspect]
     Indication: MUSCLE SPASMS
     Dates: start: 2005
  4. METOPROLOL TARTRATE [Concomitant]
  5. GABAPENTIN [Concomitant]
  6. KLOR-CON [Concomitant]
  7. MULTIVITAMIN [Concomitant]

REACTIONS (24)
  - Hypertension [None]
  - Muscle spasms [None]
  - Visual acuity reduced [None]
  - Lip discolouration [None]
  - Thirst [None]
  - Auricular swelling [None]
  - Swelling face [None]
  - Headache [None]
  - Disorientation [None]
  - Vision blurred [None]
  - Delirium [None]
  - Malaise [None]
  - Formication [None]
  - Eye swelling [None]
  - Lip swelling [None]
  - Dry mouth [None]
  - Abnormal sleep-related event [None]
  - Dysgeusia [None]
  - Confusional state [None]
  - Mental impairment [None]
  - Somnolence [None]
  - Weight decreased [None]
  - Condition aggravated [None]
  - Somnambulism [None]
